FAERS Safety Report 8819549 (Version 2)
Quarter: 2012Q4

REPORT INFORMATION
  Report Type: 
  Country: US (occurrence: US)
  Receive Date: 20121002
  Receipt Date: 20121126
  Transmission Date: 20130627
  Serious: No
  Sender: FDA-Public Use
  Company Number: US-PFIZER INC-2012241315

PATIENT
  Age: 62 Year
  Sex: Female
  Weight: 78 kg

DRUGS (4)
  1. EFFEXOR XR [Suspect]
     Indication: HOT FLASHES
     Dosage: 75 mg, daily
  2. ESTROGENS CONJUGATED [Suspect]
     Indication: HORMONE REPLACEMENT THERAPY
     Dosage: UNK
     Dates: start: 2003
  3. HYDROCHLOROTHIAZIDE [Concomitant]
     Indication: BLOOD PRESSURE HIGH
     Dosage: 25 mg, daily
  4. TRICOR [Concomitant]
     Indication: HIGH CHOLESTEROL
     Dosage: 145 mg, daily

REACTIONS (4)
  - Mood altered [Unknown]
  - Crying [Unknown]
  - Irritability [Unknown]
  - Off label use [Not Recovered/Not Resolved]
